FAERS Safety Report 22368667 (Version 1)
Quarter: 2023Q2

REPORT INFORMATION
  Report Type: Spontaneous
  Country: US (occurrence: US)
  Receive Date: 20230525
  Receipt Date: 20230525
  Transmission Date: 20230722
  Serious: Yes (Other)
  Sender: FDA-Public Use
  Company Number: US-BRISTOL-MYERS SQUIBB COMPANY-2023-072071

PATIENT
  Sex: Female

DRUGS (2)
  1. SPRYCEL [Suspect]
     Active Substance: DASATINIB
     Indication: Product used for unknown indication
  2. BOSULIF [Suspect]
     Active Substance: BOSUTINIB MONOHYDRATE
     Indication: Product used for unknown indication
     Route: 048
     Dates: start: 20230517

REACTIONS (11)
  - Abdominal pain [Unknown]
  - Ileus paralytic [Unknown]
  - Constipation [Unknown]
  - Fluid retention [Recovering/Resolving]
  - Condition aggravated [Recovering/Resolving]
  - Weight increased [Unknown]
  - Irritable bowel syndrome [Unknown]
  - Depression [Unknown]
  - Bronchitis [Unknown]
  - Illness [Unknown]
  - Immune system disorder [Unknown]
